FAERS Safety Report 5026038-1 (Version None)
Quarter: 2006Q2

REPORT INFORMATION
  Report Type: 
  Country: None (occurrence: None)
  Receive Date: 20060614
  Receipt Date: 20060605
  Transmission Date: 20061013
  Serious: Yes (Hospitalization)
  Sender: FDA-Public Use
  Company Number: US-BRISTOL-MYERS SQUIBB COMPANY-13400908

PATIENT
  Age: 62 Year
  Sex: Female
  Weight: 63 kg

DRUGS (7)
  1. PACLITAXEL [Suspect]
     Indication: NON-SMALL CELL LUNG CANCER
     Route: 042
     Dates: start: 20050222, end: 20050222
  2. CARBOPLATIN [Suspect]
     Indication: NON-SMALL CELL LUNG CANCER
     Route: 042
     Dates: start: 20050222, end: 20050222
  3. PROZAC [Concomitant]
  4. ACETYLSALICYLIC ACID SRT [Concomitant]
  5. TRAZODONE HCL [Concomitant]
  6. PRAVASTATIN [Concomitant]
  7. GEMFIBROZIL [Concomitant]

REACTIONS (1)
  - DIVERTICULUM [None]
